FAERS Safety Report 16920181 (Version 1)
Quarter: 2019Q4

REPORT INFORMATION
  Report Type: Spontaneous
  Country: US (occurrence: US)
  Receive Date: 20191015
  Receipt Date: 20191015
  Transmission Date: 20200122
  Serious: Yes (Death)
  Sender: FDA-Public Use
  Company Number: NVSC2019US001033

PATIENT
  Sex: Female

DRUGS (1)
  1. CICLOSPORIN [Suspect]
     Active Substance: CYCLOSPORINE
     Indication: EOSINOPHILIC CYSTITIS
     Dosage: 100 MG, BID
     Route: 048

REACTIONS (2)
  - Neoplasm [Fatal]
  - Product use in unapproved indication [Unknown]
